FAERS Safety Report 11402574 (Version 1)
Quarter: 2015Q3

REPORT INFORMATION
  Report Type: Spontaneous
  Country: US (occurrence: US)
  Receive Date: 20150821
  Receipt Date: 20150821
  Transmission Date: 20151125
  Serious: No
  Sender: FDA-Public Use
  Company Number: US-ROCHE-1285325

PATIENT
  Sex: Female

DRUGS (1)
  1. PEGASYS [Suspect]
     Active Substance: PEGINTERFERON ALFA-2A
     Indication: BLOOD DISORDER
     Route: 065
     Dates: start: 20131004

REACTIONS (3)
  - Headache [Unknown]
  - Pain [Unknown]
  - Off label use [Unknown]
